FAERS Safety Report 6966172-X (Version None)
Quarter: 2010Q3

REPORT INFORMATION
  Report Type: 
  Country: None (occurrence: None)
  Receive Date: 20100903
  Receipt Date: 20100826
  Transmission Date: 20110219
  Serious: No
  Sender: FDA-Public Use
  Company Number: US-B.I. PHARMACEUTICALS,INC./RIDGEFIELD-2010-BP-09790BP

PATIENT
  Sex: Male

DRUGS (2)
  1. SPIRIVA [Suspect]
     Indication: ALPHA-1 ANTI-TRYPSIN DEFICIENCY
     Dates: start: 20090801
  2. MEDICATION NOT OTHERWISE SPECIFIED [Concomitant]
     Indication: CONSTIPATION

REACTIONS (3)
  - CONSTIPATION [None]
  - URINARY RETENTION [None]
  - URINE FLOW DECREASED [None]
